FAERS Safety Report 12067959 (Version 1)
Quarter: 2016Q1

REPORT INFORMATION
  Report Type: Spontaneous
  Country: US (occurrence: US)
  Receive Date: 20160211
  Receipt Date: 20160211
  Transmission Date: 20160526
  Serious: No
  Sender: FDA-Public Use
  Company Number: US-SMITH AND NEPHEW, INC-2015SMT00194

PATIENT
  Sex: Female
  Weight: 52.61 kg

DRUGS (4)
  1. GOUT PILLS (NON-SPECIFIC) [Concomitant]
     Dosage: UNK, 1X/DAY
  2. REGRANEX [Suspect]
     Active Substance: BECAPLERMIN
     Indication: WOUND
     Dosage: UNK UNK, 1X/DAY
     Route: 061
     Dates: start: 201506, end: 2015
  3. LASIX [Concomitant]
     Active Substance: FUROSEMIDE
     Dosage: UNK, 1X/DAY
  4. 2 HEART PILLS (NON-SPECIFIC) [Concomitant]
     Dosage: UNK, 1X/DAY

REACTIONS (3)
  - Hypersensitivity [Unknown]
  - Wound complication [Recovering/Resolving]
  - Application site pain [Recovered/Resolved]

NARRATIVE: CASE EVENT DATE: 2015
